FAERS Safety Report 4327993-5 (Version None)
Quarter: 2004Q1

REPORT INFORMATION
  Report Type: 
  Country: None (occurrence: None)
  Receive Date: 20040325
  Receipt Date: 20040316
  Transmission Date: 20041129
  Serious: Yes (Death)
  Sender: FDA-Public Use
  Company Number: 163-20785-04010395

PATIENT
  Age: 56 Year
  Sex: Male

DRUGS (3)
  1. THALOMID [Suspect]
     Indication: METASTASES TO BONE
     Dosage: 600 MG, DAILY, ORAL
     Route: 048
     Dates: start: 20030318, end: 20040105
  2. THALOMID [Suspect]
     Indication: METASTASES TO LIVER
     Dosage: 600 MG, DAILY, ORAL
     Route: 048
     Dates: start: 20030318, end: 20040105
  3. THALOMID [Suspect]
     Indication: SMALL CELL LUNG CANCER STAGE UNSPECIFIED
     Dosage: 600 MG, DAILY, ORAL
     Route: 048
     Dates: start: 20030318, end: 20040105

REACTIONS (2)
  - MALIGNANT NEOPLASM PROGRESSION [None]
  - SMALL CELL LUNG CANCER EXTENSIVE STAGE [None]
